FAERS Safety Report 4919293-7 (Version None)
Quarter: 2006Q1

REPORT INFORMATION
  Report Type: 
  Country: None (occurrence: None)
  Receive Date: 20060216
  Receipt Date: 20060207
  Transmission Date: 20060701
  Serious: Yes (Other)
  Sender: FDA-Public Use
  Company Number: 2006019802

PATIENT
  Age: 55 Year
  Sex: Female
  Weight: 78.9259 kg

DRUGS (6)
  1. CELEBREX [Suspect]
     Indication: FIBROMYALGIA
     Dosage: 1 IN 1 D), ORAL
     Route: 048
     Dates: start: 20060101, end: 20060101
  2. CELEBREX [Suspect]
     Indication: OSTEOARTHRITIS
     Dosage: 1 IN 1 D), ORAL
     Route: 048
     Dates: start: 20060101, end: 20060101
  3. ZANAFLEX [Concomitant]
  4. PROTONIX [Concomitant]
  5. BUSPAR [Concomitant]
  6. ELAVIL [Concomitant]

REACTIONS (5)
  - ANXIETY [None]
  - DEHYDRATION [None]
  - GASTROOESOPHAGEAL REFLUX DISEASE [None]
  - ORAL INTAKE REDUCED [None]
  - STRESS [None]
